FAERS Safety Report 18120109 (Version 2)
Quarter: 2020Q3

REPORT INFORMATION
  Report Type: Spontaneous
  Country: US (occurrence: US)
  Receive Date: 20200806
  Receipt Date: 20200810
  Transmission Date: 20201103
  Serious: No
  Sender: FDA-Public Use
  Company Number: US-TEVA-2020-US-1809977

PATIENT

DRUGS (2)
  1. TRAZODONE HYDROCHLORIDE PLIVA [Suspect]
     Active Substance: TRAZODONE HYDROCHLORIDE
     Indication: SLEEP DISORDER
  2. TRAZODONE HYDROCHLORIDE PLIVA [Suspect]
     Active Substance: TRAZODONE HYDROCHLORIDE
     Indication: SLEEP TERROR
     Route: 065
     Dates: start: 20190215

REACTIONS (5)
  - Feeling abnormal [Unknown]
  - Somnolence [Unknown]
  - Depression [Unknown]
  - Product formulation issue [Unknown]
  - Apathy [Unknown]

NARRATIVE: CASE EVENT DATE: 202007
